FAERS Safety Report 24287444 (Version 4)
Quarter: 2025Q1

REPORT INFORMATION
  Report Type: Report from Study
  Country: US (occurrence: US)
  Receive Date: 20240905
  Receipt Date: 20250215
  Transmission Date: 20250409
  Serious: No
  Sender: GLAXOSMITHKLINE
  Company Number: US-GLAXOSMITHKLINE-US2024107765

PATIENT
  Age: 74 Year
  Sex: Female

DRUGS (3)
  1. MOMELOTINIB [Suspect]
     Active Substance: MOMELOTINIB
     Indication: Myelofibrosis
     Dates: start: 20231228
  2. MOMELOTINIB [Suspect]
     Active Substance: MOMELOTINIB
     Indication: Autoimmune anaemia
  3. MOMELOTINIB [Suspect]
     Active Substance: MOMELOTINIB

REACTIONS (2)
  - Urinary tract infection [Not Recovered/Not Resolved]
  - Off label use [Unknown]

NARRATIVE: CASE EVENT DATE: 20240218
